FAERS Safety Report 10695502 (Version 1)
Quarter: 2015Q1

REPORT INFORMATION
  Report Type: Spontaneous
  Country: US (occurrence: None)
  Receive Date: 20150106
  Receipt Date: 20150106
  Transmission Date: 20150721
  Serious: Yes (Other)
  Sender: FDA-Public Use
  Company Number: None

PATIENT
  Sex: Male
  Weight: 55.79 kg

DRUGS (4)
  1. FENTANYL. [Suspect]
     Active Substance: FENTANYL
     Indication: PAIN
     Dosage: 75MCG/HR, 2 FENTANYL 75 MCG/HR PATCH, CHANGE EVEYR 72 HOURS, STICK ON THE BODY
     Dates: start: 20140815
  2. OXYODONE [Concomitant]
  3. CALCIUM VITAMIN D [Concomitant]
     Active Substance: CALCIUM\VITAMIN D
  4. RHEMOTROID ARTHRITIS [Concomitant]

REACTIONS (3)
  - Application site irritation [None]
  - Application site pain [None]
  - Application site erythema [None]
